FAERS Safety Report 24838159 (Version 3)
Quarter: 2025Q1

REPORT INFORMATION
  Report Type: Spontaneous
  Country: UY (occurrence: UY)
  Receive Date: 20250113
  Receipt Date: 20250219
  Transmission Date: 20250409
  Serious: No
  Sender: PFIZER
  Company Number: UY-PFIZER INC-202500004897

PATIENT
  Age: 13 Year
  Sex: Male

DRUGS (1)
  1. GENOTROPIN [Suspect]
     Active Substance: SOMATROPIN
     Indication: Short stature
     Dosage: 1.2 MG, DAILY (7 TIMES PER WEEK)
     Dates: start: 20190723, end: 20250107

REACTIONS (3)
  - Drug dose omission by device [Unknown]
  - Device mechanical issue [Unknown]
  - Device information output issue [Unknown]

NARRATIVE: CASE EVENT DATE: 20250107
